FAERS Safety Report 25042352 (Version 1)
Quarter: 2025Q1

REPORT INFORMATION
  Report Type: Spontaneous
  Country: CA (occurrence: CA)
  Receive Date: 20250305
  Receipt Date: 20250305
  Transmission Date: 20250408
  Serious: Yes (Death, Hospitalization, Other)
  Sender: PFIZER
  Company Number: CA-PFIZER INC-202500048950

PATIENT
  Age: 81 Year
  Sex: Male

DRUGS (61)
  1. ALDACTONE [Suspect]
     Active Substance: SPIRONOLACTONE
     Indication: Cardiac failure
     Dosage: 12.5 MG, 1X/DAY
     Route: 048
  2. ALDACTONE [Suspect]
     Active Substance: SPIRONOLACTONE
     Dosage: 25 MG, 1X/DAY
     Route: 048
  3. SPIRONOLACTONE [Suspect]
     Active Substance: SPIRONOLACTONE
     Dosage: 25 MG, 1X/DAY
     Route: 048
  4. ENTRESTO [Suspect]
     Active Substance: SACUBITRIL\VALSARTAN
     Indication: Cardiac failure
     Dosage: UNK, 1X/DAY
     Route: 048
  5. ENTRESTO [Suspect]
     Active Substance: SACUBITRIL\VALSARTAN
     Dosage: UNK, 1X/DAY
     Route: 048
  6. ENTRESTO [Suspect]
     Active Substance: SACUBITRIL\VALSARTAN
     Dosage: UNK, 2X/DAY
     Route: 048
  7. ENTRESTO [Suspect]
     Active Substance: SACUBITRIL\VALSARTAN
     Dosage: UNK, 1X/DAY
     Route: 048
  8. FUROSEMIDE [Suspect]
     Active Substance: FUROSEMIDE
     Dosage: 40 MG, 1X/DAY
     Route: 048
  9. FUROSEMIDE [Suspect]
     Active Substance: FUROSEMIDE
     Dosage: 40 MG, 1X/DAY
     Route: 048
  10. ACETAMINOPHEN [Concomitant]
     Active Substance: ACETAMINOPHEN
     Route: 048
  11. ACETAMINOPHEN [Concomitant]
     Active Substance: ACETAMINOPHEN
     Route: 048
  12. ASPIRIN [Concomitant]
     Active Substance: ASPIRIN
     Dosage: 80 MG, 1X/DAY
     Route: 048
  13. ASPIRIN [Concomitant]
     Active Substance: ASPIRIN
     Dosage: 80 MG, 1X/DAY
     Route: 048
  14. ATORVASTATIN [Concomitant]
     Active Substance: ATORVASTATIN
     Dosage: 40 MG, 1X/DAY
     Route: 048
  15. ATORVASTATIN [Concomitant]
     Active Substance: ATORVASTATIN
     Dosage: 40 MG, 1X/DAY
     Route: 048
  16. BISOPROLOL [Concomitant]
     Active Substance: BISOPROLOL
     Dosage: 2.5 MG, 1X/DAY
     Route: 048
  17. BISOPROLOL [Concomitant]
     Active Substance: BISOPROLOL
     Dosage: 3.75 MG, 1X/DAY
     Route: 048
  18. BISOPROLOL [Concomitant]
     Active Substance: BISOPROLOL
     Dosage: 3.75 MG, 1X/DAY
     Route: 048
  19. BISOPROLOL FUMARATE [Concomitant]
     Active Substance: BISOPROLOL FUMARATE
     Dosage: 1.25 MG, 1X/DAY
     Route: 048
  20. COUMADIN [Concomitant]
     Active Substance: WARFARIN SODIUM
     Indication: Atrial fibrillation
     Dosage: 5 MG, 1X/DAY
     Route: 048
  21. COUMADIN [Concomitant]
     Active Substance: WARFARIN SODIUM
     Dosage: 5 MG, 1X/DAY
     Route: 048
  22. DAPAGLIFLOZIN PROPANEDIOL [Concomitant]
     Active Substance: DAPAGLIFLOZIN PROPANEDIOL
     Route: 048
  23. DAPAGLIFLOZIN PROPANEDIOL [Concomitant]
     Active Substance: DAPAGLIFLOZIN PROPANEDIOL
     Dosage: 10 MG, 1X/DAY
     Route: 048
  24. DEXILANT [Concomitant]
     Active Substance: DEXLANSOPRAZOLE
     Dosage: 60 MG, 1X/DAY
     Route: 048
  25. DEXILANT [Concomitant]
     Active Substance: DEXLANSOPRAZOLE
     Dosage: 60 MG, 1X/DAY
     Route: 048
  26. DILAUDID [Concomitant]
     Active Substance: HYDROMORPHONE HYDROCHLORIDE
     Route: 048
  27. DOXYCYCLINE [Concomitant]
     Active Substance: DOXYCYCLINE
     Dosage: 100 MG, 2X/DAY
     Route: 048
  28. DOXYCYCLINE [Concomitant]
     Active Substance: DOXYCYCLINE
     Dosage: 100 MG, 2X/DAY
     Route: 048
  29. DULOXETINE HYDROCHLORIDE [Concomitant]
     Active Substance: DULOXETINE HYDROCHLORIDE
     Dosage: 30 MG, 1X/DAY
     Route: 048
  30. FERROUS SULFATE [Concomitant]
     Active Substance: FERROUS SULFATE
     Route: 048
  31. FRAGMIN [Concomitant]
     Active Substance: DALTEPARIN SODIUM
     Dosage: UNK UNK, 1X/DAY
     Route: 065
  32. GLICLAZIDE [Concomitant]
     Active Substance: GLICLAZIDE
     Dosage: 30 MG, 1X/DAY
     Route: 048
  33. GLICLAZIDE [Concomitant]
     Active Substance: GLICLAZIDE
     Route: 048
  34. HALDOL [Concomitant]
     Active Substance: HALOPERIDOL
     Route: 065
  35. HALDOL [Concomitant]
     Active Substance: HALOPERIDOL
     Route: 065
  36. HYDROCHLOROTHIAZIDE [Concomitant]
     Active Substance: HYDROCHLOROTHIAZIDE
     Route: 065
  37. HYDROMORPHONE [Concomitant]
     Active Substance: HYDROMORPHONE
     Route: 065
  38. HYDROMORPHONE [Concomitant]
     Active Substance: HYDROMORPHONE
     Dosage: 3 MG, 1X/DAY
     Route: 065
  39. INSULIN HUMAN [Concomitant]
     Active Substance: INSULIN HUMAN
     Route: 065
  40. FERROUS SULFATE ANHYDROUS [Concomitant]
     Active Substance: FERROUS SULFATE ANHYDROUS
     Dosage: 300 MG, 1X/DAY
     Route: 048
  41. LEVETIRACETAM [Concomitant]
     Active Substance: LEVETIRACETAM
     Route: 048
  42. LEVETIRACETAM [Concomitant]
     Active Substance: LEVETIRACETAM
     Dosage: 500 MG, 2X/DAY
     Route: 048
  43. LYRICA [Concomitant]
     Active Substance: PREGABALIN
     Route: 065
  44. MELATONIN [Concomitant]
     Active Substance: MELATONIN
     Dosage: 5 MG, 1X/DAY
     Route: 048
  45. METFORMIN [Concomitant]
     Active Substance: METFORMIN HYDROCHLORIDE
     Dosage: 500 MG, 2X/DAY
     Route: 048
  46. MYRBETRIQ [Concomitant]
     Active Substance: MIRABEGRON
     Route: 048
  47. MYRBETRIQ [Concomitant]
     Active Substance: MIRABEGRON
     Dosage: 25 MG, 1X/DAY
     Route: 048
  48. NICODERM CQ [Concomitant]
     Active Substance: NICOTINE
     Route: 065
  49. TOBACCO LEAF [Concomitant]
     Active Substance: TOBACCO LEAF
     Route: 065
  50. HYDROMORPHONE HYDROCHLORIDE [Concomitant]
     Active Substance: HYDROMORPHONE HYDROCHLORIDE
     Route: 048
  51. HYDROMORPHONE HYDROCHLORIDE [Concomitant]
     Active Substance: HYDROMORPHONE HYDROCHLORIDE
     Route: 048
  52. POTASSIUM CHLORIDE [Concomitant]
     Active Substance: POTASSIUM CHLORIDE
     Route: 048
  53. POTASSIUM CHLORIDE [Concomitant]
     Active Substance: POTASSIUM CHLORIDE
     Route: 048
  54. PREGABALIN [Concomitant]
     Active Substance: PREGABALIN
     Route: 048
  55. PREGABALIN [Concomitant]
     Active Substance: PREGABALIN
     Dosage: 50 MG, 2X/DAY
     Route: 048
  56. RISEDRONATE SODIUM [Concomitant]
     Active Substance: RISEDRONATE SODIUM
     Route: 048
  57. RISEDRONATE SODIUM [Concomitant]
     Active Substance: RISEDRONATE SODIUM
     Dosage: 35 MG, WEEKLY
     Route: 048
  58. RISPERDAL [Concomitant]
     Active Substance: RISPERIDONE
     Dosage: 0.125 MG, 1X/DAY
     Route: 065
  59. DULOXETINE [Concomitant]
     Active Substance: DULOXETINE
     Route: 048
  60. ZOPICLONE [Concomitant]
     Active Substance: ZOPICLONE
     Route: 048
  61. ZOPICLONE [Concomitant]
     Active Substance: ZOPICLONE
     Route: 048

REACTIONS (13)
  - Acute kidney injury [Fatal]
  - C-reactive protein increased [Fatal]
  - Cardiac failure [Fatal]
  - Confusional state [Fatal]
  - Congestive hepatopathy [Fatal]
  - Disease progression [Fatal]
  - Fall [Fatal]
  - Hydrocele [Fatal]
  - Hypokalaemia [Fatal]
  - Hypovolaemia [Fatal]
  - Orthostatic hypotension [Fatal]
  - Respiratory distress [Fatal]
  - Skin lesion [Fatal]
